FAERS Safety Report 10147247 (Version 1)
Quarter: 2014Q2

REPORT INFORMATION
  Report Type: Spontaneous
  Country: US (occurrence: US)
  Receive Date: 20140501
  Receipt Date: 20140501
  Transmission Date: 20141212
  Serious: No
  Sender: FDA-Public Use
  Company Number: US-SA-2013SA100172

PATIENT
  Age: 70 Year
  Sex: Male
  Weight: 90.5 kg

DRUGS (2)
  1. HECTOROL [Suspect]
     Indication: PARATHYROID DISORDER
     Route: 030
     Dates: start: 20131002, end: 20131002
  2. HECTOROL [Suspect]
     Indication: PARATHYROID DISORDER
     Route: 065

REACTIONS (1)
  - Incorrect route of drug administration [Unknown]
